FAERS Safety Report 4651660-1 (Version None)
Quarter: 2005Q2

REPORT INFORMATION
  Report Type: 
  Country: None (occurrence: None)
  Receive Date: 20050404
  Receipt Date: 20041103
  Transmission Date: 20051028
  Serious: No
  Sender: FDA-Public Use
  Company Number: USA041183134

PATIENT
  Sex: Female

DRUGS (5)
  1. CYMBALTA [Suspect]
     Indication: NEUROPATHIC PAIN
     Dosage: 60 MG DAY
     Dates: start: 20041001
  2. FLEXERIL [Concomitant]
  3. EFFEXOR [Concomitant]
  4. BUPRENEX(BUPRENORPHINE HYDROCHLORIDE) [Concomitant]
  5. KLONOPIN [Concomitant]

REACTIONS (9)
  - DRUG INEFFECTIVE [None]
  - DRY MOUTH [None]
  - EYE PAIN [None]
  - FEELING ABNORMAL [None]
  - JUDGEMENT IMPAIRED [None]
  - KERATOCONJUNCTIVITIS SICCA [None]
  - MYDRIASIS [None]
  - PAIN [None]
  - SLEEP DISORDER [None]
